FAERS Safety Report 9897244 (Version 2)
Quarter: 2014Q1

REPORT INFORMATION
  Report Type: Report from Study
  Country: FR (occurrence: FR)
  Receive Date: 20140214
  Receipt Date: 20140214
  Transmission Date: 20141002
  Serious: Yes (Death)
  Sender: FDA-Public Use
  Company Number: FR-CELGENEUS-056-C4047-12030325

PATIENT
  Sex: Female
  Weight: 63 kg

DRUGS (9)
  1. CC-4047 [Suspect]
     Indication: PLASMA CELL MYELOMA
     Dosage: 4 MILLIGRAM
     Route: 048
     Dates: start: 20111107, end: 20111112
  2. DEXAMETHASONE [Suspect]
     Indication: PLASMA CELL MYELOMA
     Route: 065
  3. INNOHEP [Concomitant]
     Indication: THROMBOSIS PROPHYLAXIS
     Dosage: 4500 IU (INTERNATIONAL UNIT)
     Route: 065
  4. MORPHINE [Concomitant]
     Indication: BONE PAIN
     Route: 065
  5. OXYGEN [Concomitant]
     Route: 065
  6. SOLUMEDROL [Concomitant]
     Indication: PRODUCT USED FOR UNKNOWN INDICATION
     Route: 065
  7. ZELITREX [Concomitant]
     Indication: PRODUCT USED FOR UNKNOWN INDICATION
     Route: 065
  8. MOPRAL [Concomitant]
     Indication: PRODUCT USED FOR UNKNOWN INDICATION
     Route: 065
  9. WELLVONE [Concomitant]
     Indication: PRODUCT USED FOR UNKNOWN INDICATION
     Route: 065

REACTIONS (1)
  - Plasma cell myeloma [Fatal]
